FAERS Safety Report 5108897-7 (Version None)
Quarter: 2006Q3

REPORT INFORMATION
  Report Type: 
  Country: None (occurrence: None)
  Receive Date: 20060920
  Receipt Date: 20060905
  Transmission Date: 20061208
  Serious: Yes (Death, Hospitalization)
  Sender: FDA-Public Use
  Company Number: US-JNJFOC-20060901840

PATIENT
  Age: 39 Year
  Sex: Male

DRUGS (4)
  1. ACETAMINOPHEN [Suspect]
  2. ACETAMINOPHEN [Suspect]
     Indication: DRUG USE FOR UNKNOWN INDICATION
  3. METHADONE HCL [Suspect]
     Indication: BACK PAIN
     Route: 048
  4. PERCOCET [Suspect]
     Indication: BACK PAIN

REACTIONS (2)
  - HEPATIC FAILURE [None]
  - MULTIPLE DRUG OVERDOSE [None]
